FAERS Safety Report 4666849-5 (Version None)
Quarter: 2005Q2

REPORT INFORMATION
  Report Type: 
  Country: None (occurrence: None)
  Receive Date: 20050518
  Receipt Date: 20050201
  Transmission Date: 20051028
  Serious: Yes (Other)
  Sender: FDA-Public Use
  Company Number: 2004117955

PATIENT
  Age: 18 Year
  Sex: Female
  Weight: 53.978 kg

DRUGS (2)
  1. DEPO-PROVERA [Suspect]
     Indication: CONTRACEPTION
     Dosage: UNK (150 MG), INTRAMUSCULAR
     Route: 030
  2. FLUOXETINE HCL [Concomitant]

REACTIONS (1)
  - UNINTENDED PREGNANCY [None]
